FAERS Safety Report 16737649 (Version 1)
Quarter: 2019Q3

REPORT INFORMATION
  Report Type: Spontaneous
  Country: US (occurrence: US)
  Receive Date: 20190823
  Receipt Date: 20190823
  Transmission Date: 20191005
  Serious: Yes (Hospitalization)
  Sender: FDA-Public Use
  Company Number: PHEH2019US034486

PATIENT

DRUGS (3)
  1. KETAMINE [Suspect]
     Active Substance: KETAMINE
     Indication: SICKLE CELL DISEASE
     Dosage: UNK
     Route: 065
  2. GLUTAMATE (GLUTAMIC ACID) [Suspect]
     Active Substance: GLUTAMIC ACID
     Indication: SICKLE CELL DISEASE
     Dosage: UNK
     Route: 065
  3. GABAPENTIN. [Suspect]
     Active Substance: GABAPENTIN
     Indication: SICKLE CELL DISEASE
     Dosage: UNK
     Route: 065

REACTIONS (4)
  - Therapeutic product effect incomplete [Unknown]
  - Sickle cell disease [Unknown]
  - Abdominal pain [Unknown]
  - Sickle cell anaemia with crisis [Unknown]
